FAERS Safety Report 9812603 (Version 4)
Quarter: 2018Q4

REPORT INFORMATION
  Report Type: Spontaneous
  Country: JP (occurrence: JP)
  Receive Date: 20140113
  Receipt Date: 20181025
  Transmission Date: 20190205
  Serious: Yes (Other)
  Sender: FDA-Public Use
  Company Number: JP-SHIRE-ALL1-2014-00155

PATIENT

DRUGS (2)
  1. FOSRENOL [Suspect]
     Active Substance: LANTHANUM CARBONATE
     Indication: HYPERPHOSPHATAEMIA
     Dosage: 750 MG, OTHER (DAILY DOSE)
     Route: 048
  2. FOSRENOL [Suspect]
     Active Substance: LANTHANUM CARBONATE
     Indication: CHRONIC KIDNEY DISEASE
     Dosage: 250 MG, 3X/DAY:TID
     Route: 048

REACTIONS (3)
  - Aspiration [Recovered/Resolved]
  - Foreign body in respiratory tract [Recovered/Resolved]
  - Wrong technique in product usage process [Unknown]

NARRATIVE: CASE EVENT DATE: 20140106
